FAERS Safety Report 18821451 (Version 1)
Quarter: 2021Q1

REPORT INFORMATION
  Report Type: Spontaneous
  Country: JP (occurrence: JP)
  Receive Date: 20210202
  Receipt Date: 20210202
  Transmission Date: 20210419
  Serious: Yes (Hospitalization)
  Sender: FDA-Public Use
  Company Number: JP-PFIZER INC-2021079352

PATIENT
  Age: 6 Decade
  Sex: Male
  Weight: 79.1 kg

DRUGS (3)
  1. LORAZEPAM. [Suspect]
     Active Substance: LORAZEPAM
     Dosage: 10 DF (10 TABLETS)
     Route: 048
  2. ESZOPICLONE. [Suspect]
     Active Substance: ESZOPICLONE
     Dosage: OVERDOSE
  3. ESZOPICLONE. [Suspect]
     Active Substance: ESZOPICLONE
     Dosage: 1 MG, DAILY

REACTIONS (2)
  - Overdose [Unknown]
  - Suicide attempt [Unknown]
